FAERS Safety Report 7598577-0 (Version None)
Quarter: 2011Q3

REPORT INFORMATION
  Report Type: 
  Country: None (occurrence: None)
  Receive Date: 20110708
  Receipt Date: 20110629
  Transmission Date: 20111222
  Serious: Yes (Hospitalization, Other)
  Sender: FDA-Public Use
  Company Number: US-ASTRAZENECA-2011SE23259

PATIENT
  Age: 71 Year
  Sex: Female

DRUGS (1)
  1. CRESTOR [Suspect]
     Route: 048

REACTIONS (6)
  - GAIT DISTURBANCE [None]
  - CHONDROPATHY [None]
  - BLOOD CHOLESTEROL INCREASED [None]
  - HEARING IMPAIRED [None]
  - HIP ARTHROPLASTY [None]
  - SINUS DISORDER [None]
